FAERS Safety Report 9387162 (Version 1)
Quarter: 2013Q3

REPORT INFORMATION
  Report Type: Report from Study
  Country: JP (occurrence: JP)
  Receive Date: 20130708
  Receipt Date: 20130708
  Transmission Date: 20140515
  Serious: Yes (Death, Other)
  Sender: FDA-Public Use
  Company Number: PHHY2010JP45878

PATIENT
  Age: 51 Year
  Sex: Male
  Weight: 102 kg

DRUGS (4)
  1. AFINITOR [Suspect]
     Indication: METASTATIC RENAL CELL CARCINOMA
     Dosage: 10 MG, DAILY
     Route: 048
     Dates: start: 20100520, end: 20100604
  2. GLYCYRON [Concomitant]
     Dosage: 3 DF
     Route: 048
     Dates: start: 20100520, end: 20100624
  3. THYRADIN [Concomitant]
     Dosage: 200 MG
     Route: 048
     Dates: start: 20100520, end: 20100624
  4. TAKEPRON [Concomitant]
     Dosage: 30 MG
     Route: 048
     Dates: start: 20100520, end: 20100624

REACTIONS (3)
  - General physical health deterioration [Unknown]
  - Malignant neoplasm progression [Fatal]
  - Pyrexia [Fatal]
